FAERS Safety Report 9917213 (Version 1)
Quarter: 2014Q1

REPORT INFORMATION
  Report Type: Spontaneous
  Country: SK (occurrence: SK)
  Receive Date: 20140221
  Receipt Date: 20140221
  Transmission Date: 20141002
  Serious: Yes (Death, Life-Threatening)
  Sender: FDA-Public Use
  Company Number: SK-PFIZER INC-2014047180

PATIENT
  Age: 69 Year
  Sex: Male

DRUGS (5)
  1. SORTIS [Suspect]
     Indication: CEREBRAL INFARCTION
     Dosage: 80 MG, 1X/DAY
     Route: 048
     Dates: start: 20131231, end: 20140127
  2. ATACAND [Concomitant]
     Dosage: 16 MG, UNK
     Route: 048
  3. EGILOK [Concomitant]
     Dosage: 25 MG, UNK
     Route: 048
  4. VEROSPIRON [Concomitant]
     Dosage: 25 MG, UNK
  5. LEVETIRACETAM [Concomitant]
     Dosage: 500 MG, UNK

REACTIONS (4)
  - Cardiac failure [Fatal]
  - Rhabdomyolysis [Not Recovered/Not Resolved]
  - Renal failure acute [Not Recovered/Not Resolved]
  - Acute hepatic failure [Not Recovered/Not Resolved]
